FAERS Safety Report 7604144-2 (Version None)
Quarter: 2011Q3

REPORT INFORMATION
  Report Type: 
  Country: None (occurrence: None)
  Receive Date: 20110711
  Receipt Date: 20110711
  Transmission Date: 20111222
  Serious: Yes (Other)
  Sender: FDA-Public Use
  Company Number: None

PATIENT
  Age: 29 Year
  Sex: Male
  Weight: 74.8435 kg

DRUGS (2)
  1. PROPECIA [Concomitant]
  2. PROSCAR [Suspect]
     Indication: ANDROGENETIC ALOPECIA
     Dosage: 1.25MG  DAILY PO
     Route: 048
     Dates: start: 20070201, end: 20101009

REACTIONS (14)
  - LOSS OF LIBIDO [None]
  - ERECTILE DYSFUNCTION [None]
  - TESTICULAR PAIN [None]
  - DYSURIA [None]
  - DEPRESSION [None]
  - ANXIETY [None]
  - AGITATION [None]
  - PARANOIA [None]
  - SEMEN VOLUME DECREASED [None]
  - NERVOUS SYSTEM DISORDER [None]
  - DISTURBANCE IN ATTENTION [None]
  - MUSCLE TWITCHING [None]
  - PANIC ATTACK [None]
  - PARAESTHESIA [None]
